FAERS Safety Report 8947481 (Version 1)
Quarter: 2012Q4

REPORT INFORMATION
  Report Type: 
  Country: DE (occurrence: DE)
  Receive Date: 20121204
  Receipt Date: 20121204
  Transmission Date: 20130627
  Serious: Yes (Disabling, Other)
  Sender: FDA-Public Use
  Company Number: DE-ROCHE-CID000000002193410

PATIENT
  Age: 30 Year
  Sex: Female
  Weight: 50 kg

DRUGS (3)
  1. ZELBORAF [Suspect]
     Indication: METASTATIC MALIGNANT MELANOMA
     Route: 048
     Dates: start: 201205, end: 201211
  2. PREDNISOLON [Concomitant]
     Indication: RASH
     Route: 048
     Dates: start: 201205, end: 201211
  3. TAVOR (GERMANY) [Concomitant]
     Indication: ANXIETY
     Route: 048
     Dates: start: 201205

REACTIONS (2)
  - Alopecia effluvium [Recovered/Resolved with Sequelae]
  - Disease progression [Unknown]
